FAERS Safety Report 23639287 (Version 1)
Quarter: 2024Q1

REPORT INFORMATION
  Report Type: Spontaneous
  Country: FR (occurrence: FR)
  Receive Date: 20240316
  Receipt Date: 20240316
  Transmission Date: 20240409
  Serious: Yes (Other)
  Sender: FDA-Public Use
  Company Number: None

PATIENT
  Age: 18 Year
  Sex: Female

DRUGS (1)
  1. AMOXICILLIN [Suspect]
     Active Substance: AMOXICILLIN
     Indication: Sinusitis
     Dosage: 1 SOCKET
     Route: 048
     Dates: start: 202203, end: 202203

REACTIONS (5)
  - Dyspnoea [Recovered/Resolved]
  - Rash [Recovered/Resolved]
  - Localised oedema [Recovered/Resolved]
  - Burning sensation [Recovered/Resolved]
  - Face oedema [Recovered/Resolved]

NARRATIVE: CASE EVENT DATE: 20220301
